FAERS Safety Report 15225208 (Version 3)
Quarter: 2018Q3

REPORT INFORMATION
  Report Type: Spontaneous
  Country: US (occurrence: US)
  Receive Date: 20180801
  Receipt Date: 20180912
  Transmission Date: 20181010
  Serious: No
  Sender: FDA-Public Use
  Company Number: US-AMGEN-USASP2018103475

PATIENT
  Sex: Female
  Weight: 56.42 kg

DRUGS (21)
  1. HUMIRA [Concomitant]
     Active Substance: ADALIMUMAB
     Indication: RHEUMATOID ARTHRITIS
     Dosage: UNK
     Route: 058
     Dates: start: 201603, end: 201710
  2. XELJANZ XR [Concomitant]
     Active Substance: TOFACITINIB CITRATE
     Dosage: 11 MG, QD
     Route: 048
  3. ORENCIA [Concomitant]
     Active Substance: ABATACEPT
     Dosage: 125 MG, UNK
  4. ACTEMRA [Concomitant]
     Active Substance: TOCILIZUMAB
     Dosage: 162 MG, EVERY ONE OR TWO WEEK
  5. SULFASALAZINE. [Concomitant]
     Active Substance: SULFASALAZINE
     Indication: RHEUMATOID ARTHRITIS
     Dosage: UNK
     Dates: start: 201408
  6. HCQ [Concomitant]
     Active Substance: HYDROXYCHLOROQUINE SULFATE
     Indication: RHEUMATOID ARTHRITIS
     Dosage: UNK
     Dates: start: 201408
  7. CIMZIA [Concomitant]
     Active Substance: CERTOLIZUMAB PEGOL
     Dosage: 200 MG, EVERY TWO OR FOUR WEEK
  8. SIMPONI [Concomitant]
     Active Substance: GOLIMUMAB
     Dosage: 50 MG, QWK
  9. METHOTREXATE. [Concomitant]
     Active Substance: METHOTREXATE
     Indication: RHEUMATOID ARTHRITIS
     Dosage: UNK, QWK
  10. REMICADE [Concomitant]
     Active Substance: INFLIXIMAB
     Dosage: UNK
  11. COSENTYX [Concomitant]
     Active Substance: SECUKINUMAB
     Dosage: UNK
  12. RECLAST [Concomitant]
     Active Substance: ZOLEDRONIC ACID
     Dosage: UNK
  13. RITUXAN [Concomitant]
     Active Substance: RITUXIMAB
     Dosage: 500 MG, 2 IN 2 WEEK
  14. OTREXUP [Concomitant]
     Active Substance: METHOTREXATE
  15. ENBREL [Suspect]
     Active Substance: ETANERCEPT
     Indication: RHEUMATOID ARTHRITIS
     Dosage: UNK
     Route: 065
     Dates: start: 201710
  16. PROLIA [Concomitant]
     Active Substance: DENOSUMAB
     Dosage: 60 MG, 1 IN 6 MONTH
  17. BONIVA [Concomitant]
     Active Substance: IBANDRONATE SODIUM
     Dosage: 3 MG/KG, 1 IN 3 M
  18. SIMPONI ARIA [Concomitant]
     Active Substance: GOLIMUMAB
     Dosage: UNK
  19. ENBREL [Suspect]
     Active Substance: ETANERCEPT
     Dosage: UNK
     Route: 065
     Dates: start: 20180515
  20. BENLYSTA [Concomitant]
     Active Substance: BELIMUMAB
     Dosage: 200 MG, QWK
  21. OTEZLA [Concomitant]
     Active Substance: APREMILAST
     Dosage: 30 MG,2 IN 1 D

REACTIONS (2)
  - Surgery [Unknown]
  - Drug ineffective [Unknown]
